FAERS Safety Report 7481021-1 (Version None)
Quarter: 2011Q2

REPORT INFORMATION
  Report Type: 
  Country: None (occurrence: None)
  Receive Date: 20110505
  Receipt Date: 20110429
  Transmission Date: 20111010
  Serious: Yes (Death, Life-Threatening, Hospitalization)
  Sender: FDA-Public Use
  Company Number: 2011SP046427

PATIENT
  Age: 44 Year
  Sex: Female

DRUGS (6)
  1. SAPHRIS [Suspect]
     Indication: SCHIZOAFFECTIVE DISORDER
     Dosage: 5 MG;BID;PO
     Route: 048
     Dates: start: 20091230, end: 20100822
  2. CLONAZEPAM [Concomitant]
  3. INVEGA [Concomitant]
  4. GABAPENTIN [Concomitant]
  5. ZOLPIDEM TARTRATE [Concomitant]
  6. ZOLOFT [Concomitant]

REACTIONS (3)
  - ANAPHYLACTIC SHOCK [None]
  - CONTRAST MEDIA REACTION [None]
  - CHEST PAIN [None]
